FAERS Safety Report 8529576-X (Version None)
Quarter: 2012Q3

REPORT INFORMATION
  Report Type: 
  Country: None (occurrence: None)
  Receive Date: 20120723
  Receipt Date: 20120710
  Transmission Date: 20120928
  Serious: Yes (Other)
  Sender: FDA-Public Use
  Company Number: JP-009507513-1207JPN002809

PATIENT

DRUGS (11)
  1. INTERFERON BETA NOS [Suspect]
     Route: 041
     Dates: start: 20120409, end: 20120622
  2. ENALAPRIL MALEATE [Concomitant]
     Dosage: THE DIVIDED DOSE FREQUENCY IS UNCERTAIN.
     Route: 048
     Dates: end: 20120622
  3. FERROUS CITRATE [Concomitant]
     Indication: UPPER GASTROINTESTINAL HAEMORRHAGE
     Dosage: THE DIVIDED DOSE FREQUENCY IS UNCERTAIN.
     Route: 048
     Dates: end: 20120622
  4. PROTECADIN [Concomitant]
     Indication: UPPER GASTROINTESTINAL HAEMORRHAGE
     Dosage: THE DIVIDED DOSE FREQUENCY IS UNCERTAIN.
     Route: 048
     Dates: end: 20120622
  5. INTERFERON BETA NOS [Suspect]
     Indication: HEPATITIS C
     Dosage: 6 MILLION IU, ONCE
     Route: 041
     Dates: start: 20120322, end: 20120408
  6. ARICEPT [Concomitant]
     Indication: DEMENTIA
     Dosage: THE DIVIDED DOSE FREQUENCY IS UNCERTAIN.
     Route: 048
     Dates: end: 20120622
  7. SELBEX [Concomitant]
     Indication: HEPATITIS C
     Dosage: AS NEEDED
     Route: 048
     Dates: start: 20120322, end: 20120622
  8. MAGMITT [Concomitant]
     Indication: CONSTIPATION
     Dosage: THE DIVIDED DOSE FREQUENCY IS UNCERTAIN.
     Route: 048
     Dates: end: 20120622
  9. LOXONIN [Concomitant]
     Indication: HEPATITIS C
     Dosage: AS NEEDED
     Route: 048
     Dates: start: 20120322, end: 20120622
  10. [THERAPY UNSPECIFIED] [Concomitant]
     Indication: HEPATITIS C
     Route: 048
     Dates: start: 20120622, end: 20120622
  11. REBETOL [Suspect]
     Indication: HEPATITIS C
     Dosage: 200 MG, BID
     Route: 048
     Dates: start: 20120322, end: 20120622

REACTIONS (1)
  - CEREBRAL HAEMORRHAGE [None]
